FAERS Safety Report 13322841 (Version 2)
Quarter: 2017Q2

REPORT INFORMATION
  Report Type: Report from Study
  Country: AU (occurrence: AU)
  Receive Date: 20170310
  Receipt Date: 20170412
  Transmission Date: 20170830
  Serious: Yes (Death, Other)
  Sender: FDA-Public Use
  Company Number: AU-AMGEN-AUSNI2017036768

PATIENT
  Age: 61 Year
  Sex: Male

DRUGS (2)
  1. CARFILZOMIB [Suspect]
     Active Substance: CARFILZOMIB
     Indication: PLASMA CELL MYELOMA
     Dosage: UNK
     Route: 065
  2. CARFILZOMIB [Suspect]
     Active Substance: CARFILZOMIB
     Dosage: UNK
     Route: 065
     Dates: start: 20160614

REACTIONS (6)
  - Plasma cell leukaemia [Fatal]
  - Hypercalcaemia [Unknown]
  - Acute kidney injury [Unknown]
  - Drug resistance [Unknown]
  - Plasma cell myeloma [Fatal]
  - Dehydration [Unknown]

NARRATIVE: CASE EVENT DATE: 201606
